FAERS Safety Report 6097875-X (Version None)
Quarter: 2009Q1

REPORT INFORMATION
  Report Type: 
  Country: None (occurrence: None)
  Receive Date: 20090227
  Receipt Date: 20090125
  Transmission Date: 20090719
  Serious: Yes (Death, Hospitalization)
  Sender: FDA-Public Use
  Company Number: PHHO2008IL02488

PATIENT
  Sex: Male
  Weight: 80 kg

DRUGS (11)
  1. ICL670A ICL+DISTAB [Suspect]
     Indication: IRON OVERLOAD
     Dosage: 20 MG/KG, QD
     Route: 048
     Dates: start: 20080122, end: 20090128
  2. ICL670A ICL+DISTAB [Suspect]
     Dosage: 12 MG/KG, QD
     Route: 048
     Dates: start: 20080129, end: 20080204
  3. ICL670A ICL+DISTAB [Suspect]
     Dosage: 8 MG/KG, QD
     Route: 048
     Dates: start: 20080205, end: 20080214
  4. DISOTHIAZIDE [Concomitant]
     Dosage: 25 MG
  5. FUSID [Concomitant]
     Dosage: 40 MG
  6. LOSEC [Concomitant]
     Dosage: 20 MG
  7. ALLORIL [Concomitant]
     Dosage: 300 MG
  8. EPREX [Concomitant]
     Dosage: 2000 UNITS
  9. PREDNISONE [Concomitant]
     Dosage: 20 MG
  10. ACETYLSALICYLIC ACID SRT [Concomitant]
     Dosage: 100 MG
  11. POTASSIUM CHLORIDE [Concomitant]
     Dosage: 600 MG

REACTIONS (20)
  - ABDOMINAL PAIN [None]
  - ALANINE AMINOTRANSFERASE INCREASED [None]
  - ANOREXIA [None]
  - ARTHRALGIA [None]
  - ASPARTATE AMINOTRANSFERASE INCREASED [None]
  - ASTHENIA [None]
  - BLOOD CREATININE INCREASED [None]
  - DIZZINESS [None]
  - DYSPNOEA [None]
  - FATIGUE [None]
  - HAEMODYNAMIC INSTABILITY [None]
  - HEPATITIS FULMINANT [None]
  - INTERNATIONAL NORMALISED RATIO INCREASED [None]
  - JAUNDICE [None]
  - LACTIC ACIDOSIS [None]
  - LEUKOCYTOSIS [None]
  - NAUSEA [None]
  - NEUTROPHILIA [None]
  - PAIN [None]
  - SEPSIS [None]
